FAERS Safety Report 9719235 (Version 1)
Quarter: 2013Q4

REPORT INFORMATION
  Report Type: Report from Study
  Country: IT (occurrence: IT)
  Receive Date: 20131127
  Receipt Date: 20131127
  Transmission Date: 20140711
  Serious: Yes (Hospitalization)
  Sender: FDA-Public Use
  Company Number: PHHO2013IT015303

PATIENT
  Sex: 0

DRUGS (5)
  1. CGS 20267 [Suspect]
     Indication: BREAST CANCER
     Dosage: 2.5 MG, DAILY
     Route: 048
     Dates: start: 20110513, end: 20130408
  2. OMEPRAZOLE [Concomitant]
     Dosage: 20 MG, UNK
     Route: 048
     Dates: start: 20130423
  3. ENOXAPARINA [Concomitant]
     Dosage: 4000
     Route: 058
     Dates: start: 20130408, end: 20130430
  4. CIPROFLOXACINA [Concomitant]
     Dosage: 500 MG, UNK
     Route: 048
     Dates: start: 20130408, end: 20130430
  5. PARACETAMOL+CODEIN [Concomitant]
     Dosage: 500MG+30MG
     Route: 048
     Dates: start: 20130423

REACTIONS (1)
  - Multiple injuries [Recovered/Resolved]
